FAERS Safety Report 7579337-3 (Version None)
Quarter: 2011Q2

REPORT INFORMATION
  Report Type: 
  Country: None (occurrence: None)
  Receive Date: 20110628
  Receipt Date: 20110623
  Transmission Date: 20111010
  Serious: Yes (Death, Hospitalization)
  Sender: FDA-Public Use
  Company Number: IT-CELGENEUS-083-21880-11063163

PATIENT
  Sex: Male

DRUGS (3)
  1. ALKERAN [Concomitant]
     Route: 065
     Dates: start: 20110404, end: 20110518
  2. PREDNISONE [Concomitant]
     Route: 065
     Dates: start: 20110402, end: 20110518
  3. REVLIMID [Suspect]
     Indication: MULTIPLE MYELOMA
     Dosage: 10 MILLIGRAM
     Route: 048
     Dates: start: 20110404, end: 20110518

REACTIONS (1)
  - FEBRILE NEUTROPENIA [None]
